FAERS Safety Report 19380010 (Version 4)
Quarter: 2021Q3

REPORT INFORMATION
  Report Type: Spontaneous
  Country: US (occurrence: US)
  Receive Date: 20210607
  Receipt Date: 20210825
  Transmission Date: 20211014
  Serious: Yes (Other)
  Sender: FDA-Public Use
  Company Number: US-JNJFOC-20210603282

PATIENT
  Sex: Female
  Weight: 98.97 kg

DRUGS (2)
  1. STELARA [Suspect]
     Active Substance: USTEKINUMAB
     Indication: CROHN^S DISEASE
     Route: 042
     Dates: start: 20210510
  2. MIRALAX [Concomitant]
     Active Substance: POLYETHYLENE GLYCOL 3350
     Indication: PRODUCT USED FOR UNKNOWN INDICATION

REACTIONS (16)
  - Pelvic pain [Unknown]
  - Palpitations [Unknown]
  - Presyncope [Unknown]
  - Dyspnoea [Unknown]
  - Headache [Unknown]
  - Chest pain [Unknown]
  - Dizziness [Unknown]
  - Migraine [Unknown]
  - Pyrexia [Unknown]
  - Biliary colic [Unknown]
  - Heavy menstrual bleeding [Unknown]
  - Crohn^s disease [Not Recovered/Not Resolved]
  - Fatigue [Unknown]
  - Muscle spasms [Unknown]
  - Mood swings [Unknown]
  - Heart rate increased [Unknown]

NARRATIVE: CASE EVENT DATE: 2021
